FAERS Safety Report 10065331 (Version 1)
Quarter: 2014Q1

REPORT INFORMATION
  Report Type: Spontaneous
  Country: US (occurrence: None)
  Receive Date: 20140328
  Receipt Date: 20140328
  Transmission Date: 20141002
  Serious: No
  Sender: FDA-Public Use
  Company Number: 1000052750

PATIENT
  Age: 80 Year
  Sex: Female

DRUGS (6)
  1. LINZESS [Suspect]
     Indication: CONSTIPATION
     Dosage: 145 MCG, 1 IN 1 D, ORAL
     Route: 048
     Dates: start: 20140103
  2. SYNTHROID (LEVOTHYROXINE SODIUM) [Concomitant]
  3. LANSOPRAZOLE (LANSOPRAZOLE) [Concomitant]
  4. PRAVASTATIN [Concomitant]
  5. CLONAZEPAM [Concomitant]
  6. CITALOPRAM (CITALOPRAM HYDROBROMIDE) [Concomitant]

REACTIONS (1)
  - Drug ineffective [None]
